FAERS Safety Report 8014091-2 (Version None)
Quarter: 2011Q4

REPORT INFORMATION
  Report Type: 
  Country: None (occurrence: None)
  Receive Date: 20111229
  Receipt Date: 20111222
  Transmission Date: 20120403
  Serious: Yes (Disabling, Other)
  Sender: FDA-Public Use
  Company Number: DE-ALLERGAN-1115316US

PATIENT
  Age: 52 Year
  Sex: Female

DRUGS (1)
  1. OZURDEX [Suspect]
     Indication: RETINAL VEIN OCCLUSION
     Dosage: UNK
     Route: 031
     Dates: start: 20111116, end: 20111116

REACTIONS (5)
  - RETINAL DETACHMENT [None]
  - INJECTION SITE REACTION [None]
  - ENDOPHTHALMITIS [None]
  - VISUAL IMPAIRMENT [None]
  - CATARACT [None]
